FAERS Safety Report 8952708 (Version 2)
Quarter: 2013Q1

REPORT INFORMATION
  Report Type: Spontaneous
  Country: JP (occurrence: JP)
  Receive Date: 20121205
  Receipt Date: 20130116
  Transmission Date: 20140127
  Serious: Yes (Hospitalization)
  Sender: FDA-Public Use
  Company Number: JP-B.I. PHARMACEUTICALS,INC./RIDGEFIELD-2012-BI-01890NB

PATIENT
  Sex: 0

DRUGS (1)
  1. SPIRIVA [Suspect]
     Indication: RESPIRATORY DISORDER
     Route: 055

REACTIONS (1)
  - Neoplasm malignant [Unknown]
